FAERS Safety Report 6322218-3 (Version None)
Quarter: 2009Q3

REPORT INFORMATION
  Report Type: 
  Country: None (occurrence: None)
  Receive Date: 20090824
  Receipt Date: 20090812
  Transmission Date: 20100115
  Serious: Yes (Death)
  Sender: FDA-Public Use
  Company Number: JP-PFIZER INC-2009250364

PATIENT
  Age: 77 Year

DRUGS (9)
  1. FARMORUBICIN [Suspect]
     Indication: HEPATIC NEOPLASM MALIGNANT
     Dosage: 50 MG, 1X/DAY
     Route: 013
     Dates: end: 20090703
  2. LIPIODOL [Suspect]
     Indication: HEPATIC NEOPLASM MALIGNANT
     Dosage: 10 ML, 1X/DAY
     Route: 013
     Dates: end: 20090703
  3. GELATIN [Suspect]
     Indication: HEPATIC NEOPLASM MALIGNANT
     Dosage: TRACE DAILY
     Route: 013
     Dates: end: 20090703
  4. PANSPORIN [Suspect]
     Dosage: 1 G, 1X/DAY
     Route: 042
     Dates: start: 20090703
  5. ROPION [Suspect]
     Dosage: 50 MG, 1X/DAY
     Route: 042
     Dates: start: 20090703
  6. LEVOFLOXACIN [Suspect]
     Dosage: 200 MG, 2X/DAY
     Route: 048
     Dates: start: 20090703, end: 20090703
  7. COLONEL [Suspect]
     Dosage: 100 MG, 3X/DAY
     Route: 048
     Dates: start: 20090702, end: 20090708
  8. STRONG NEO-MINOPHAGEN C [Suspect]
     Dosage: 40 ML, 1X/DAY
     Route: 042
     Dates: start: 20090702, end: 20090710
  9. OPTIRAY 350 [Suspect]
     Dosage: 120 ML, 1X/DAY
     Route: 013
     Dates: start: 20090703, end: 20090703

REACTIONS (1)
  - INTERSTITIAL LUNG DISEASE [None]
